FAERS Safety Report 5015488-5 (Version None)
Quarter: 2006Q2

REPORT INFORMATION
  Report Type: 
  Country: None (occurrence: None)
  Receive Date: 20060530
  Receipt Date: 20060530
  Transmission Date: 20061013
  Serious: Yes (Other)
  Sender: FDA-Public Use
  Company Number: None

PATIENT
  Age: 52 Year
  Sex: Male
  Weight: 132.5 kg

DRUGS (10)
  1. LAMOTRIGINE [Suspect]
  2. ALPRAZOLAM [Concomitant]
  3. TOPIRAMATE [Concomitant]
  4. LITHIUM CARBONATE [Concomitant]
  5. LAMOTRIGINE [Concomitant]
  6. HYDROCHLOROTHIAZIDE [Concomitant]
  7. ASPIRIN [Concomitant]
  8. NAPROXEN [Concomitant]
  9. CARISOPRODOL [Concomitant]
  10. METOPROLOL TARTRATE [Concomitant]

REACTIONS (1)
  - SPEECH DISORDER [None]
